FAERS Safety Report 5680576-7 (Version None)
Quarter: 2008Q1

REPORT INFORMATION
  Report Type: 
  Country: None (occurrence: None)
  Receive Date: 20080326
  Receipt Date: 20080321
  Transmission Date: 20080703
  Serious: Yes (Life-Threatening)
  Sender: FDA-Public Use
  Company Number: IT-BRISTOL-MYERS SQUIBB COMPANY-14118772

PATIENT
  Age: 74 Year
  Sex: Male

DRUGS (1)
  1. ERBITUX [Suspect]
     Indication: LIP AND/OR ORAL CAVITY CANCER
     Dosage: STRENGTH- 2MG/ML.
     Route: 042
     Dates: start: 20080130, end: 20080220

REACTIONS (1)
  - DYSPNOEA [None]
